FAERS Safety Report 6334712-X (Version None)
Quarter: 2009Q3

REPORT INFORMATION
  Report Type: 
  Country: None (occurrence: None)
  Receive Date: 20090831
  Receipt Date: 20090819
  Transmission Date: 20100115
  Serious: Yes (Other)
  Sender: FDA-Public Use
  Company Number: US-ELI_LILLY_AND_COMPANY-US200908004331

PATIENT
  Age: 42 Year
  Sex: Male

DRUGS (5)
  1. FORTEO [Suspect]
     Indication: JAW FRACTURE
     Dosage: 20 UG, DAILY (1/D)
     Dates: start: 20090501, end: 20090801
  2. FORTEO [Suspect]
     Dosage: 20 UG, DAILY (1/D)
     Dates: start: 20090818
  3. MULTI-VITAMINS [Concomitant]
     Dosage: UNK, UNKNOWN
  4. POTASSIUM CHLORIDE [Concomitant]
     Dosage: UNK, UNKNOWN
  5. VITAMIN D [Concomitant]
     Dosage: UNK, UNKNOWN

REACTIONS (7)
  - ABDOMINAL DISTENSION [None]
  - ABDOMINAL RIGIDITY [None]
  - DRUG DOSE OMISSION [None]
  - DYSPNOEA [None]
  - EYE SWELLING [None]
  - GAIT DISTURBANCE [None]
  - JOINT SWELLING [None]
